FAERS Safety Report 5762383-X (Version None)
Quarter: 2008Q2

REPORT INFORMATION
  Report Type: 
  Country: None (occurrence: None)
  Receive Date: 20080609
  Receipt Date: 20080527
  Transmission Date: 20081010
  Serious: Yes (Other)
  Sender: FDA-Public Use
  Company Number: DE-AMGEN-UK276019

PATIENT
  Age: 50 Year
  Sex: Female
  Weight: 60 kg

DRUGS (10)
  1. NEULASTA [Suspect]
     Indication: CHEMOTHERAPY
     Route: 058
     Dates: start: 20080214, end: 20080419
  2. NEUPOGEN [Suspect]
     Indication: CHEMOTHERAPY
     Route: 058
     Dates: start: 20080505
  3. EPIRUBICIN [Concomitant]
     Route: 041
  4. PACLITAXEL [Concomitant]
     Route: 041
  5. CORTISONE [Concomitant]
     Route: 065
  6. DEXAMETHASONE TAB [Concomitant]
     Route: 042
  7. ONDANSETRON [Concomitant]
     Route: 042
  8. CLEMASTINE FUMARATE [Concomitant]
     Route: 042
  9. ZANTAC [Concomitant]
     Route: 042
  10. VITAMIN B6 [Concomitant]
     Route: 048
     Dates: start: 20080212

REACTIONS (18)
  - ABDOMINAL PAIN UPPER [None]
  - ASTHENIA [None]
  - BONE PAIN [None]
  - DYSPNOEA [None]
  - FEELING ABNORMAL [None]
  - FEELING HOT [None]
  - HEADACHE [None]
  - INSOMNIA [None]
  - LYMPH NODE PAIN [None]
  - LYMPHADENOPATHY [None]
  - METABOLIC DISORDER [None]
  - NECK PAIN [None]
  - PALPITATIONS [None]
  - PLATELET COUNT DECREASED [None]
  - RESTLESS LEGS SYNDROME [None]
  - SWEAT GLAND DISORDER [None]
  - TACHYCARDIA [None]
  - WHITE BLOOD CELL COUNT INCREASED [None]
